FAERS Safety Report 9235587 (Version 1)
Quarter: 2013Q2

REPORT INFORMATION
  Report Type: Spontaneous
  Country: NO (occurrence: NO)
  Receive Date: 20130417
  Receipt Date: 20130417
  Transmission Date: 20140414
  Serious: Yes (Hospitalization)
  Sender: FDA-Public Use
  Company Number: NO-AMGEN-NORSP2013021174

PATIENT
  Age: 61 Year
  Sex: Male

DRUGS (4)
  1. XGEVA [Suspect]
     Indication: METASTASES TO BONE
     Dosage: 120 MG, Q4WK
     Route: 058
     Dates: start: 20121019
  2. CHEMOTHERAPEUTICS [Concomitant]
  3. ANALGESIC                          /00999201/ [Concomitant]
  4. CORTISONE [Concomitant]

REACTIONS (6)
  - Pyrexia [Unknown]
  - Urinary tract infection [Unknown]
  - Pain [Not Recovered/Not Resolved]
  - Condition aggravated [Unknown]
  - Influenza like illness [Unknown]
  - Malaise [Unknown]
